FAERS Safety Report 18566436 (Version 1)
Quarter: 2020Q4

REPORT INFORMATION
  Report Type: Spontaneous
  Country: FR (occurrence: FR)
  Receive Date: 20201201
  Receipt Date: 20201201
  Transmission Date: 20210114
  Serious: Yes (Hospitalization)
  Sender: FDA-Public Use
  Company Number: NVSC2020FR318724

PATIENT
  Age: 30 Year
  Sex: Female
  Weight: 73 kg

DRUGS (7)
  1. MIFEGYNE [Suspect]
     Active Substance: MIFEPRISTONE
     Indication: ABORTION INDUCED
     Dosage: 600 MG 1 TOTAL
     Route: 067
     Dates: start: 20200822, end: 20200822
  2. NAROPEINE [Suspect]
     Active Substance: ROPIVACAINE HYDROCHLORIDE
     Indication: ANAESTHESIA
     Dosage: 1 DF 1 TOTAL
     Route: 051
     Dates: start: 20200824, end: 20200824
  3. ISOFUNDINE [Concomitant]
     Active Substance: CALCIUM CHLORIDE\MAGNESIUM CHLORIDE\MALIC ACID\POTASSIUM CHLORIDE\SODIUM ACETATE\SODIUM CHLORIDE
     Indication: ANAESTHESIA
     Dosage: 500 ML 1 TOTAL
     Route: 041
     Dates: start: 20200824, end: 20200824
  4. ZOPHREN [Suspect]
     Active Substance: ONDANSETRON
     Indication: PROPHYLAXIS OF NAUSEA AND VOMITING
     Dosage: 20 MG 1 TOTAL
     Route: 042
     Dates: start: 20200824, end: 20200824
  5. SUFENTANIL [Suspect]
     Active Substance: SUFENTANIL
     Indication: ABORTION INDUCED
     Dosage: 5 ML 1 TOTAL
     Route: 008
     Dates: start: 20200824, end: 20200824
  6. XYLOCAIN-ADRENALIN [Suspect]
     Active Substance: EPINEPHRINE BITARTRATE\LIDOCAINE HYDROCHLORIDE
     Indication: ANAESTHESIA
     Dosage: 30 MG 1 TOTAL
     Route: 058
     Dates: start: 20200824, end: 20200824
  7. GYMISO [Suspect]
     Active Substance: MISOPROSTOL
     Indication: ABORTION INDUCED
     Dosage: 800 UG 1 TOTAL
     Route: 048
     Dates: start: 20200824, end: 20200824

REACTIONS (1)
  - Third stage postpartum haemorrhage [Recovered/Resolved]

NARRATIVE: CASE EVENT DATE: 20200824
